FAERS Safety Report 6033490-1 (Version None)
Quarter: 2009Q1

REPORT INFORMATION
  Report Type: 
  Country: None (occurrence: None)
  Receive Date: 20090109
  Receipt Date: 20090102
  Transmission Date: 20090719
  Serious: Yes (Disabling, Other)
  Sender: FDA-Public Use
  Company Number: CA-ROXANE LABORATORIES, INC.-2009-RO-00002RO

PATIENT
  Age: 39 Year
  Sex: Male

DRUGS (11)
  1. MYCOPHENOLATE MOFETIL [Suspect]
     Indication: IMMUNOSUPPRESSANT DRUG THERAPY
     Dosage: 3000MG
  2. METHYLPREDNISOLONE 16MG TAB [Suspect]
     Indication: IMMUNOSUPPRESSANT DRUG THERAPY
  3. TACROLIMUS [Suspect]
     Indication: IMMUNOSUPPRESSANT DRUG THERAPY
  4. MILRINONE [Suspect]
  5. EPINEPHRINE [Suspect]
  6. ISOPRIL [Suspect]
  7. VASOPRESSIN [Concomitant]
     Indication: BLOOD PRESSURE
  8. LEVOPHED [Concomitant]
     Indication: BLOOD PRESSURE
  9. VANCOMYCIN HYDROCHLORIDE [Concomitant]
     Indication: EVIDENCE BASED TREATMENT
  10. IMIPENEM [Concomitant]
     Indication: EVIDENCE BASED TREATMENT
  11. CIPROFLOXACIN HCL [Concomitant]
     Indication: EVIDENCE BASED TREATMENT

REACTIONS (6)
  - KLEBSIELLA INFECTION [None]
  - NECROTISING FASCIITIS [None]
  - PANCYTOPENIA [None]
  - RENAL FAILURE ACUTE [None]
  - SEPSIS [None]
  - TOE AMPUTATION [None]
